FAERS Safety Report 6957394-2 (Version None)
Quarter: 2010Q3

REPORT INFORMATION
  Report Type: 
  Country: None (occurrence: None)
  Receive Date: 20100831
  Receipt Date: 20100818
  Transmission Date: 20110219
  Serious: No
  Sender: FDA-Public Use
  Company Number: PHHY2010US53937

PATIENT
  Age: 61 Year
  Sex: Female
  Weight: 68 kg

DRUGS (11)
  1. GLEEVEC [Suspect]
     Indication: NEOPLASM MALIGNANT
     Dosage: 400 MG, DAILY
     Route: 048
     Dates: start: 20100101
  2. LISINOPRIL [Concomitant]
  3. CRESTOR [Concomitant]
  4. IRON SUPPLEMENTS [Concomitant]
  5. ASPIRIN [Concomitant]
  6. CALCIUM [Concomitant]
  7. SENNA [Concomitant]
     Route: 048
  8. XANAX [Concomitant]
     Dosage: 0.25 MG
     Route: 048
  9. FERROPLEX [Concomitant]
     Dosage: 90 MG
     Route: 048
  10. METOPROLOL TARTRATE [Concomitant]
     Dosage: 25 MG
     Route: 048
  11. VICODIN [Concomitant]
     Dosage: 500 MG TABLET
     Route: 048

REACTIONS (8)
  - ABDOMINAL PAIN [None]
  - BLOOD CREATININE INCREASED [None]
  - DEFAECATION URGENCY [None]
  - FREQUENT BOWEL MOVEMENTS [None]
  - HAEMATOCHEZIA [None]
  - MUSCLE SPASMS [None]
  - PLATELET COUNT DECREASED [None]
  - SKIN DISCOLOURATION [None]
